FAERS Safety Report 4560079-3 (Version None)
Quarter: 2005Q1

REPORT INFORMATION
  Report Type: 
  Country: None (occurrence: None)
  Receive Date: 20050124
  Receipt Date: 20050111
  Transmission Date: 20050727
  Serious: Yes (Other)
  Sender: FDA-Public Use
  Company Number: 2005011225

PATIENT
  Sex: Male

DRUGS (1)
  1. DESITIN DIAPER RASH (ZINC OXIDE) [Suspect]
     Indication: DERMATITIS DIAPER
     Dosage: TOPICAL
     Route: 061
     Dates: start: 19740101

REACTIONS (1)
  - TESTIS CANCER [None]
